FAERS Safety Report 24684191 (Version 3)
Quarter: 2024Q4

REPORT INFORMATION
  Report Type: Report from Study
  Country: FR (occurrence: FR)
  Receive Date: 20241202
  Receipt Date: 20241223
  Transmission Date: 20250114
  Serious: No
  Sender: SANDOZ
  Company Number: FR-SANDOZ-SDZ2024FR097412

PATIENT
  Age: 7 Year
  Sex: Male

DRUGS (1)
  1. OMNITROPE [Suspect]
     Active Substance: SOMATROPIN
     Indication: Product used for unknown indication
     Dosage: 0.8 MG /D 6D/7
     Route: 058
     Dates: start: 20241118

REACTIONS (5)
  - Anxiety [Unknown]
  - Injection site haemorrhage [Unknown]
  - Incorrect dose administered by device [Unknown]
  - Needle issue [Unknown]
  - Product quality issue [Unknown]

NARRATIVE: CASE EVENT DATE: 20241120
